FAERS Safety Report 16427943 (Version 2)
Quarter: 2019Q2

REPORT INFORMATION
  Report Type: Spontaneous
  Country: GB (occurrence: GB)
  Receive Date: 20190613
  Receipt Date: 20190618
  Transmission Date: 20190711
  Serious: Yes (Hospitalization, Other)
  Sender: FDA-Public Use
  Company Number: GB-PFIZER INC-2019249540

PATIENT
  Age: 5 Decade
  Sex: Female

DRUGS (4)
  1. RAMIPRIL. [Suspect]
     Active Substance: RAMIPRIL
     Indication: HYPERTENSION
     Dosage: INGESTED AN ENTIRE BOX OF MEDICATION
     Route: 048
  2. AMLODIPINE BESILATE [Suspect]
     Active Substance: AMLODIPINE BESYLATE
     Indication: DEPRESSION
     Dosage: INGESTED AN ENTIRE BOX OF MEDICATION
     Route: 048
  3. AMLODIPINE BESILATE [Suspect]
     Active Substance: AMLODIPINE BESYLATE
     Indication: HYPERTENSION
  4. RAMIPRIL. [Suspect]
     Active Substance: RAMIPRIL
     Indication: DEPRESSION

REACTIONS (3)
  - Shock [Unknown]
  - Overdose [Unknown]
  - Toxicity to various agents [Unknown]
